FAERS Safety Report 15427107 (Version 3)
Quarter: 2018Q4

REPORT INFORMATION
  Report Type: Spontaneous
  Country: US (occurrence: US)
  Receive Date: 20180925
  Receipt Date: 20181207
  Transmission Date: 20190204
  Serious: Yes (Hospitalization)
  Sender: FDA-Public Use
  Company Number: US-ACTELION-A-US2018-179271

PATIENT
  Age: 49 Year
  Sex: Female
  Weight: 47.17 kg

DRUGS (7)
  1. OPSUMIT [Concomitant]
     Active Substance: MACITENTAN
  2. SYNTHROID [Concomitant]
     Active Substance: LEVOTHYROXINE SODIUM
  3. WARFARIN [Concomitant]
     Active Substance: WARFARIN
  4. REVATIO [Concomitant]
     Active Substance: SILDENAFIL CITRATE
  5. LASIX [Concomitant]
     Active Substance: FUROSEMIDE
  6. ALDACTONE [Concomitant]
     Active Substance: SPIRONOLACTONE
  7. VELETRI [Suspect]
     Active Substance: EPOPROSTENOL
     Indication: PULMONARY HYPERTENSION
     Dosage: 33 NG/KG, PER MIN
     Route: 042

REACTIONS (7)
  - Nasopharyngitis [Unknown]
  - Cough [Unknown]
  - Device related thrombosis [Recovered/Resolved]
  - Device occlusion [Recovered/Resolved]
  - Complication associated with device [Unknown]
  - Device issue [Unknown]
  - Flushing [Unknown]

NARRATIVE: CASE EVENT DATE: 20180916
